FAERS Safety Report 21931453 (Version 1)
Quarter: 2023Q1

REPORT INFORMATION
  Report Type: Spontaneous
  Country: IL (occurrence: IL)
  Receive Date: 20230131
  Receipt Date: 20230131
  Transmission Date: 20230418
  Serious: Yes (Other)
  Sender: FDA-Public Use
  Company Number: IL-BAXTER-2023BAX011455

PATIENT
  Age: 56 Year
  Sex: Female

DRUGS (6)
  1. CYCLOPHOSPHAMIDE [Suspect]
     Active Substance: CYCLOPHOSPHAMIDE
     Indication: Plasma cell myeloma
     Dosage: AS A PART OF THIRD LINE KCD REGIMEN, THERAPY START DATE: MAR-2022
     Route: 065
  2. CYCLOPHOSPHAMIDE [Suspect]
     Active Substance: CYCLOPHOSPHAMIDE
     Indication: Lymphodepletion
     Dosage: COMBINED WITH FLUDARABINE
     Route: 065
  3. CARFILZOMIB [Suspect]
     Active Substance: CARFILZOMIB
     Indication: Plasma cell myeloma
     Dosage: AS A PART OF THIRD LINE KCD REGIMEN, THERAPY START DATE: MAR-2022
     Route: 065
  4. DEXAMETHASONE [Suspect]
     Active Substance: DEXAMETHASONE
     Indication: Plasma cell myeloma
     Dosage: AS A PART OF THIRD LINE KCD REGIMEN, THERAPY START DATE: MAR-2022
     Route: 065
  5. BELANTAMAB MAFODOTIN [Suspect]
     Active Substance: BELANTAMAB MAFODOTIN
     Indication: Plasma cell myeloma
     Dosage: FOURTH LINE, THERAPY START DATE: SEP-2022
     Route: 065
  6. FLUDARABINE [Suspect]
     Active Substance: FLUDARABINE PHOSPHATE
     Indication: Lymphodepletion
     Dosage: COMBINED WITH CYCLOPHOSPHAMIDE
     Route: 065

REACTIONS (8)
  - Plasma cell myeloma [Unknown]
  - Therapy partial responder [Unknown]
  - Keratopathy [Unknown]
  - Bone pain [Unknown]
  - Light chain analysis increased [Unknown]
  - Bone marrow disorder [Unknown]
  - Disease progression [Unknown]
  - Vision blurred [Unknown]
